FAERS Safety Report 17549129 (Version 1)
Quarter: 2020Q1

REPORT INFORMATION
  Report Type: Spontaneous
  Country: FR (occurrence: FR)
  Receive Date: 20200317
  Receipt Date: 20200317
  Transmission Date: 20200409
  Serious: Yes (Life-Threatening)
  Sender: FDA-Public Use
  Company Number: FR-ACCORD-175886

PATIENT
  Age: 1 Year
  Sex: Male
  Weight: 10 kg

DRUGS (4)
  1. CARBOPLATIN ACCORD [Suspect]
     Active Substance: CARBOPLATIN
     Indication: NEUROBLASTOMA
     Dosage: STRENGTH 10 MG/ML
     Route: 041
     Dates: start: 20200122, end: 20200124
  2. ETOPOPHOS [Suspect]
     Active Substance: ETOPOSIDE PHOSPHATE
     Indication: NEUROBLASTOMA
     Dosage: STRENGTH 100 MG, LYOPHILISATE FOR PARENTERAL USE
     Route: 041
     Dates: start: 20200122, end: 20200124
  3. PLITICAN [Concomitant]
     Active Substance: ALIZAPRIDE HYDROCHLORIDE
  4. ZOPHREN [Concomitant]
     Active Substance: ONDANSETRON

REACTIONS (5)
  - Acute respiratory distress syndrome [Recovering/Resolving]
  - Thrombocytopenia [Recovering/Resolving]
  - Mouth haemorrhage [Recovering/Resolving]
  - Bone marrow failure [Recovering/Resolving]
  - Mucosal inflammation [Recovering/Resolving]

NARRATIVE: CASE EVENT DATE: 20200126
